FAERS Safety Report 11719242 (Version 2)
Quarter: 2016Q4

REPORT INFORMATION
  Report Type: Report from Study
  Country: US (occurrence: US)
  Receive Date: 20151110
  Receipt Date: 20161110
  Transmission Date: 20170206
  Serious: No
  Sender: FDA-Public Use
  Company Number: US-VANDA PHARMACEUTICALS, INC-2015TASUS000950

PATIENT
  Age: 71 Year
  Sex: Male
  Weight: 105.67 kg

DRUGS (1)
  1. HETLIOZ [Suspect]
     Active Substance: TASIMELTEON
     Indication: CIRCADIAN RHYTHM SLEEP DISORDER
     Dosage: 20 MG, QD
     Route: 048
     Dates: start: 20150826

REACTIONS (4)
  - Hallucination [Recovered/Resolved]
  - Unevaluable event [Recovered/Resolved]
  - Somnambulism [Recovered/Resolved]
  - Nightmare [Not Recovered/Not Resolved]

NARRATIVE: CASE EVENT DATE: 20150925
